FAERS Safety Report 4337172-3 (Version None)
Quarter: 2004Q1

REPORT INFORMATION
  Report Type: 
  Country: None (occurrence: None)
  Receive Date: 20040329
  Receipt Date: 20040217
  Transmission Date: 20041129
  Serious: No
  Sender: FDA-Public Use
  Company Number: USA040259586

PATIENT
  Age: 11 Year
  Sex: Female
  Weight: 26 kg

DRUGS (2)
  1. STRATTERA [Suspect]
     Dosage: 25 MG/ 1 DAY
     Dates: start: 20040113
  2. GEODON [Concomitant]

REACTIONS (1)
  - HYPERTONIA [None]
